FAERS Safety Report 6030012-6 (Version None)
Quarter: 2009Q1

REPORT INFORMATION
  Report Type: 
  Country: None (occurrence: None)
  Receive Date: 20090105
  Receipt Date: 20090105
  Transmission Date: 20090719
  Serious: Yes (Death, Other)
  Sender: FDA-Public Use
  Company Number: None

PATIENT
  Age: 69 Year
  Sex: Female
  Weight: 68.0396 kg

DRUGS (1)
  1. DOXIL [Suspect]
     Indication: FALLOPIAN TUBE CANCER
     Dates: start: 20080624, end: 20080819

REACTIONS (12)
  - BLOOD ALBUMIN DECREASED [None]
  - CARBOHYDRATE ANTIGEN 125 INCREASED [None]
  - CONDITION AGGRAVATED [None]
  - HEPATIC FAILURE [None]
  - HYPOAESTHESIA [None]
  - IMPAIRED HEALING [None]
  - INFECTION [None]
  - PARAESTHESIA [None]
  - PITTING OEDEMA [None]
  - THERAPEUTIC AGENT TOXICITY [None]
  - VAGINAL HAEMORRHAGE [None]
  - WEIGHT INCREASED [None]
